FAERS Safety Report 8158355-0 (Version None)
Quarter: 2012Q1

REPORT INFORMATION
  Report Type: 
  Country: None (occurrence: None)
  Receive Date: 20120217
  Receipt Date: 20120207
  Transmission Date: 20120608
  Serious: Yes (Hospitalization)
  Sender: FDA-Public Use
  Company Number: 001079332

PATIENT
  Sex: Male

DRUGS (4)
  1. PROACTIV 90 DAY KIT (TONER SPECIFICALLY) [Suspect]
  2. PROACTIV 90 DAY KIT (TONER SPECIFICALLY) [Suspect]
     Indication: ACNE
     Dosage: DAILY
  3. PROACTIV 90 DAY KIT (TONER SPECIFICALLY) [Suspect]
  4. PROACTIV 90 DAY KIT (TONER SPECIFICALLY) [Suspect]

REACTIONS (2)
  - URTICARIA [None]
  - ERYTHEMA [None]
